FAERS Safety Report 4896910-1 (Version None)
Quarter: 2006Q1

REPORT INFORMATION
  Report Type: 
  Country: None (occurrence: None)
  Receive Date: 20060127
  Receipt Date: 20060118
  Transmission Date: 20060701
  Serious: Yes (Hospitalization)
  Sender: FDA-Public Use
  Company Number: FR200601002798

PATIENT
  Age: 75 Year
  Sex: Female
  Weight: 75 kg

DRUGS (2)
  1. XIGRIS [Suspect]
     Indication: SEPTIC SHOCK
     Dosage: 44 MG, DAILY (1/D), INTRAVENOUS
     Route: 042
     Dates: start: 20051127, end: 20051130
  2. HEPARIN [Concomitant]

REACTIONS (2)
  - DRUG SPECIFIC ANTIBODY PRESENT [None]
  - HEPARIN-INDUCED THROMBOCYTOPENIA [None]
